FAERS Safety Report 6762626-X (Version None)
Quarter: 2010Q2

REPORT INFORMATION
  Report Type: 
  Country: None (occurrence: None)
  Receive Date: 20100609
  Receipt Date: 20100607
  Transmission Date: 20101027
  Serious: Yes (Other)
  Sender: FDA-Public Use
  Company Number: GXKR2010DE06132

PATIENT
  Sex: Male

DRUGS (2)
  1. MCP HEXAL (NGX) [Suspect]
     Dosage: 10 MG, UNK
     Route: 048
  2. METAMIZOLE (NGX) [Interacting]
     Route: 048

REACTIONS (1)
  - PHLEBITIS [None]
